FAERS Safety Report 19157126 (Version 1)
Quarter: 2021Q2

REPORT INFORMATION
  Report Type: Spontaneous
  Country: US (occurrence: US)
  Receive Date: 20210419
  Receipt Date: 20210419
  Transmission Date: 20210717
  Serious: Yes (Life-Threatening, Hospitalization, Other)
  Sender: FDA-Public Use
  Company Number: None

PATIENT
  Age: 88 Year
  Sex: Male
  Weight: 65.4 kg

DRUGS (1)
  1. BAMLANIVIMAB. [Suspect]
     Active Substance: BAMLANIVIMAB
     Indication: COVID-19
     Dosage: ?          OTHER FREQUENCY:ONCE;?
     Route: 041
     Dates: start: 20210117, end: 20210117

REACTIONS (6)
  - Chills [None]
  - Hypertension [None]
  - Agitation [None]
  - COVID-19 pneumonia [None]
  - Diabetes mellitus inadequate control [None]
  - Hypersensitivity [None]

NARRATIVE: CASE EVENT DATE: 20210117
